FAERS Safety Report 17148455 (Version 1)
Quarter: 2019Q4

REPORT INFORMATION
  Report Type: Spontaneous
  Country: US (occurrence: US)
  Receive Date: 20191212
  Receipt Date: 20191212
  Transmission Date: 20200122
  Serious: No
  Sender: FDA-Public Use
  Company Number: NVSC2019US062808

PATIENT
  Age: 69 Year
  Sex: Female

DRUGS (1)
  1. VIVELLE-DOT [Suspect]
     Active Substance: ESTRADIOL
     Indication: PRODUCT USED FOR UNKNOWN INDICATION
     Dosage: 0.1 MG, BIW
     Route: 062
     Dates: end: 20191204

REACTIONS (4)
  - Product quality issue [Unknown]
  - Application site pruritus [Recovered/Resolved]
  - Depression [Unknown]
  - Application site irritation [Unknown]
